FAERS Safety Report 5944801-7 (Version None)
Quarter: 2008Q4

REPORT INFORMATION
  Report Type: 
  Country: None (occurrence: None)
  Receive Date: 20081107
  Receipt Date: 20081030
  Transmission Date: 20090506
  Serious: Yes (Death, Hospitalization, Other)
  Sender: FDA-Public Use
  Company Number: US-BAYER-200812779BCC

PATIENT
  Age: 71 Year
  Sex: Female
  Weight: 78 kg

DRUGS (16)
  1. ASPIRIN [Suspect]
     Indication: ATRIAL FIBRILLATION
  2. ASPIRIN [Suspect]
  3. PLAVIX [Suspect]
     Indication: ATRIAL FIBRILLATION
     Dosage: TOTAL DAILY DOSE: 75 MG
     Dates: start: 20050101
  4. PLAVIX [Suspect]
     Dosage: TOTAL DAILY DOSE: 75 MG
     Dates: end: 20080226
  5. TOPROL-XL [Concomitant]
  6. NOVOLOG [Concomitant]
  7. LANTUS [Concomitant]
  8. COENZYME Q10 [Concomitant]
  9. VITAMIN D [Concomitant]
  10. TUMERIC [Concomitant]
  11. HOREHOUND [Concomitant]
  12. DANDELION ROOT [Concomitant]
  13. FENUGREEK [Concomitant]
  14. CINNAMON [Concomitant]
  15. OSTEO-CHONDROITIN [Concomitant]
  16. OMEGA FISH OIL [Concomitant]

REACTIONS (3)
  - CEREBROVASCULAR ACCIDENT [None]
  - DEATH [None]
  - TRANSIENT ISCHAEMIC ATTACK [None]
